FAERS Safety Report 11094884 (Version 5)
Quarter: 2015Q4

REPORT INFORMATION
  Report Type: Spontaneous
  Country: US (occurrence: US)
  Receive Date: 20150506
  Receipt Date: 20151117
  Transmission Date: 20160304
  Serious: Yes (Hospitalization, Other)
  Sender: FDA-Public Use
  Company Number: US-UNITED THERAPEUTICS-UNT-2015-005134

PATIENT
  Age: 88 Year
  Sex: Female
  Weight: 64.4 kg

DRUGS (15)
  1. FLUDROCORTISONE [Suspect]
     Active Substance: FLUDROCORTISONE
     Indication: HYPERKALAEMIA
     Dosage: 0.1 MG, QD
     Route: 048
     Dates: start: 201503
  2. ISOSORBIDE MONONITRATE. [Concomitant]
     Active Substance: ISOSORBIDE MONONITRATE
     Indication: PRODUCT USED FOR UNKNOWN INDICATION
     Dosage: 60 MG, QD
     Route: 048
  3. TYVASO [Suspect]
     Active Substance: TREPROSTINIL
     Dosage: UNK
  4. ASPIRIN                            /00002701/ [Concomitant]
     Active Substance: ASPIRIN
     Indication: PRODUCT USED FOR UNKNOWN INDICATION
     Dosage: 81 MG, QD
     Route: 048
  5. ATORVASTATIN [Concomitant]
     Active Substance: ATORVASTATIN
     Indication: PRODUCT USED FOR UNKNOWN INDICATION
     Dosage: 80 MG, QD
     Route: 048
  6. TYVASO [Suspect]
     Active Substance: TREPROSTINIL
     Dosage: 54 ?G, 4-5 TIMES DAILY
  7. HYDROXYUREA. [Concomitant]
     Active Substance: HYDROXYUREA
     Indication: PRODUCT USED FOR UNKNOWN INDICATION
     Dosage: 500 MG, BID
     Route: 048
  8. TYVASO [Suspect]
     Active Substance: TREPROSTINIL
     Dosage: 48 ?G, QID
  9. LASIX [Concomitant]
     Active Substance: FUROSEMIDE
     Dosage: 30 MG, QD
     Route: 048
  10. DIGOXIN. [Concomitant]
     Active Substance: DIGOXIN
     Indication: PRODUCT USED FOR UNKNOWN INDICATION
     Dosage: 125 ?G, QOD
     Route: 048
  11. TYVASO [Suspect]
     Active Substance: TREPROSTINIL
     Indication: PULMONARY HYPERTENSION
     Dosage: 18-54 ?G, QID
     Dates: start: 20130611
  12. LATANOPROST. [Concomitant]
     Active Substance: LATANOPROST
     Indication: PRODUCT USED FOR UNKNOWN INDICATION
     Dosage: 1 DROP TO EACH EYE AT BEDTIME
  13. NITROGLYCERIN. [Concomitant]
     Active Substance: NITROGLYCERIN
     Indication: CHEST PAIN
     Dosage: 0.4 MG, AS NEEDED
     Route: 060
  14. AMLODIPINE [Concomitant]
     Active Substance: AMLODIPINE BESYLATE
     Indication: PRODUCT USED FOR UNKNOWN INDICATION
     Dosage: 10 MG, QD
     Route: 048
  15. TYVASO [Suspect]
     Active Substance: TREPROSTINIL
     Dosage: UNK

REACTIONS (12)
  - Cardiac failure congestive [Unknown]
  - Off label use [Unknown]
  - Asthenia [Recovered/Resolved]
  - Cough [Unknown]
  - Throat irritation [Unknown]
  - Pericardial effusion [Unknown]
  - Fluid retention [Recovered/Resolved]
  - Presyncope [Recovered/Resolved]
  - Hyperkalaemia [Unknown]
  - Essential thrombocythaemia [Unknown]
  - Weight decreased [Unknown]
  - Head discomfort [Unknown]

NARRATIVE: CASE EVENT DATE: 2015
